FAERS Safety Report 8142441-5 (Version None)
Quarter: 2012Q1

REPORT INFORMATION
  Report Type: 
  Country: None (occurrence: None)
  Receive Date: 20120216
  Receipt Date: 20120208
  Transmission Date: 20120608
  Serious: Yes (Other)
  Sender: FDA-Public Use
  Company Number: US-JNJFOC-20120204546

PATIENT
  Sex: Male
  Weight: 111.13 kg

DRUGS (8)
  1. TESTOSTERONE [Concomitant]
     Indication: ERECTILE DYSFUNCTION
     Route: 058
     Dates: start: 20070101
  2. CLARINEX [Concomitant]
     Indication: MULTIPLE ALLERGIES
     Route: 048
     Dates: start: 20070101
  3. OMEPRAZOLE [Concomitant]
     Indication: DYSPEPSIA
     Route: 048
     Dates: start: 20070101
  4. VESICARE [Concomitant]
     Indication: URINARY TRACT DISORDER
     Route: 048
     Dates: start: 20090101
  5. ARAVA [Concomitant]
     Indication: RHEUMATOID ARTHRITIS
     Route: 048
     Dates: start: 20070101
  6. PREDNISONE TAB [Concomitant]
     Indication: RHEUMATOID ARTHRITIS
     Route: 048
     Dates: start: 20070101
  7. SIMPONI [Suspect]
     Indication: RHEUMATOID ARTHRITIS
     Route: 058
     Dates: start: 20110401
  8. NASONEX [Concomitant]
     Indication: MULTIPLE ALLERGIES
     Route: 045
     Dates: start: 20070101

REACTIONS (7)
  - DEPRESSION [None]
  - BLOOD CHOLESTEROL INCREASED [None]
  - DRUG DOSE OMISSION [None]
  - HYPERTENSION [None]
  - PRODUCT PACKAGING ISSUE [None]
  - ANXIETY [None]
  - HERPES ZOSTER [None]
